FAERS Safety Report 12755755 (Version 1)
Quarter: 2016Q3

REPORT INFORMATION
  Report Type: Spontaneous
  Country: US (occurrence: US)
  Receive Date: 20160916
  Receipt Date: 20160916
  Transmission Date: 20161109
  Serious: Yes (Death)
  Sender: FDA-Public Use
  Company Number: US-BAXALTA-2016BLT006582

PATIENT
  Age: 67 Year
  Sex: Female

DRUGS (1)
  1. HYQVIA [Suspect]
     Active Substance: HUMAN IMMUNOGLOBULIN G\HYALURONIDASE RECOMBINANT HUMAN
     Indication: PRIMARY IMMUNODEFICIENCY SYNDROME
     Dosage: 30 G, EVERY 4 WK
     Route: 065
     Dates: start: 2015

REACTIONS (3)
  - Death [Fatal]
  - Hypophagia [Unknown]
  - Lack of spontaneous speech [Unknown]

NARRATIVE: CASE EVENT DATE: 20160820
